FAERS Safety Report 23532256 (Version 4)
Quarter: 2024Q3

REPORT INFORMATION
  Report Type: Spontaneous
  Country: CA (occurrence: CA)
  Receive Date: 20240216
  Receipt Date: 20240701
  Transmission Date: 20241017
  Serious: Yes (Congenital Anomaly)
  Sender: NOVARTIS
  Company Number: CA-002147023-NVSC2024CA031794

PATIENT
  Sex: Female

DRUGS (116)
  1. COSENTYX [Suspect]
     Active Substance: SECUKINUMAB
     Indication: Exposure during pregnancy
     Dosage: UNK
     Route: 064
  2. DICLOFENAC SODIUM [Suspect]
     Active Substance: DICLOFENAC\DICLOFENAC SODIUM
     Indication: Exposure during pregnancy
     Dosage: UNK
     Route: 064
  3. DICLOFENAC SODIUM [Suspect]
     Active Substance: DICLOFENAC\DICLOFENAC SODIUM
     Indication: Rheumatoid arthritis
  4. ERELZI [Suspect]
     Active Substance: ETANERCEPT-SZZS
     Indication: Exposure during pregnancy
     Dosage: UNK
     Route: 064
  5. ERELZI [Suspect]
     Active Substance: ETANERCEPT-SZZS
     Indication: Product used for unknown indication
  6. RITUXIMAB [Suspect]
     Active Substance: RITUXIMAB
     Indication: Rheumatic fever
     Dosage: 2 G
     Route: 064
  7. RITUXIMAB [Suspect]
     Active Substance: RITUXIMAB
     Indication: Exposure during pregnancy
     Dosage: 1000 MG
     Route: 064
  8. RITUXIMAB [Suspect]
     Active Substance: RITUXIMAB
     Dosage: 1 G
     Route: 064
  9. RITUXIMAB [Suspect]
     Active Substance: RITUXIMAB
     Dosage: 2000 MG
     Route: 064
  10. RITUXIMAB [Suspect]
     Active Substance: RITUXIMAB
     Dosage: 2000 MG
     Route: 064
  11. RITUXIMAB [Suspect]
     Active Substance: RITUXIMAB
     Dosage: 1000 MG
     Route: 064
  12. RITUXIMAB [Suspect]
     Active Substance: RITUXIMAB
     Dosage: 1000 MG
     Route: 064
  13. RITUXIMAB [Suspect]
     Active Substance: RITUXIMAB
     Dosage: 1 G
     Route: 064
  14. RITUXIMAB [Suspect]
     Active Substance: RITUXIMAB
     Dosage: 1 G
     Route: 064
  15. ACETAMINOPHEN [Suspect]
     Active Substance: ACETAMINOPHEN
     Indication: Exposure during pregnancy
     Dosage: UNK
     Route: 064
  16. ACETAMINOPHEN [Suspect]
     Active Substance: ACETAMINOPHEN
     Indication: Rheumatoid arthritis
  17. ACTEMRA [Suspect]
     Active Substance: TOCILIZUMAB
     Indication: Exposure during pregnancy
     Dosage: 160.0 MG
     Route: 064
  18. ACTEMRA [Suspect]
     Active Substance: TOCILIZUMAB
     Indication: Rheumatoid arthritis
     Dosage: 25.0 MG, QW(1 EVERY 1 WEEKS))
     Route: 064
  19. ACTEMRA [Suspect]
     Active Substance: TOCILIZUMAB
     Dosage: 8 MG
     Route: 064
  20. ACTEMRA [Suspect]
     Active Substance: TOCILIZUMAB
     Dosage: 162.0 MG
     Route: 064
  21. ACTEMRA [Suspect]
     Active Substance: TOCILIZUMAB
     Dosage: 8.0 UG
     Route: 064
  22. ACTEMRA [Suspect]
     Active Substance: TOCILIZUMAB
     Dosage: UNK
     Route: 064
  23. ACTEMRA [Suspect]
     Active Substance: TOCILIZUMAB
     Dosage: 8 MG/KG
     Route: 064
     Dates: start: 20220613
  24. ACTEMRA [Suspect]
     Active Substance: TOCILIZUMAB
     Dosage: 8 MG/KG
     Route: 064
  25. PREDNISONE [Suspect]
     Active Substance: PREDNISONE
     Indication: Exposure during pregnancy
     Dosage: 20.0 MG
     Route: 064
  26. PREDNISONE [Suspect]
     Active Substance: PREDNISONE
     Indication: Rheumatoid arthritis
     Dosage: 10.0 MG
     Route: 064
  27. PREDNISONE [Suspect]
     Active Substance: PREDNISONE
     Dosage: 50 MG
     Route: 064
  28. PREDNISONE [Suspect]
     Active Substance: PREDNISONE
     Dosage: UNK
     Route: 064
  29. ARAVA [Suspect]
     Active Substance: LEFLUNOMIDE
     Indication: Exposure during pregnancy
     Dosage: 20 MG
     Route: 064
  30. ARAVA [Suspect]
     Active Substance: LEFLUNOMIDE
     Indication: Rheumatoid arthritis
  31. AZATHIOPRINE [Suspect]
     Active Substance: AZATHIOPRINE
     Indication: Exposure during pregnancy
     Dosage: UNK
     Route: 064
  32. AZATHIOPRINE [Suspect]
     Active Substance: AZATHIOPRINE
     Indication: Product used for unknown indication
  33. CETIRIZINE HYDROCHLORIDE [Suspect]
     Active Substance: CETIRIZINE HYDROCHLORIDE
     Indication: Exposure during pregnancy
     Dosage: UNK
     Route: 064
  34. CETIRIZINE HYDROCHLORIDE [Suspect]
     Active Substance: CETIRIZINE HYDROCHLORIDE
     Indication: Rheumatoid arthritis
  35. CIMZIA [Suspect]
     Active Substance: CERTOLIZUMAB PEGOL
     Indication: Exposure during pregnancy
     Dosage: UNK
     Route: 064
  36. CIMZIA [Suspect]
     Active Substance: CERTOLIZUMAB PEGOL
     Indication: Rheumatic fever
  37. CIMZIA [Suspect]
     Active Substance: CERTOLIZUMAB PEGOL
     Indication: Exposure during pregnancy
     Dosage: 200 MG (CYCLICAL)
     Route: 064
  38. CIMZIA [Suspect]
     Active Substance: CERTOLIZUMAB PEGOL
     Indication: Rheumatic fever
     Dosage: UNK
     Route: 064
  39. CORTISONE ACETATE [Suspect]
     Active Substance: CORTISONE ACETATE
     Indication: Exposure during pregnancy
     Dosage: 25.0 MG
     Route: 064
  40. CORTISONE ACETATE [Suspect]
     Active Substance: CORTISONE ACETATE
     Indication: Product used for unknown indication
  41. DESOXIMETASONE [Suspect]
     Active Substance: DESOXIMETASONE
     Indication: Exposure during pregnancy
     Dosage: UNK
     Route: 064
  42. DESOXIMETASONE [Suspect]
     Active Substance: DESOXIMETASONE
     Indication: Rheumatic fever
     Dosage: UNK
     Route: 064
  43. DESOXIMETASONE [Suspect]
     Active Substance: DESOXIMETASONE
     Dosage: UNK
     Route: 064
  44. ENBREL [Suspect]
     Active Substance: BENZYL ALCOHOL\ETANERCEPT
     Indication: Exposure during pregnancy
     Dosage: 50.0 MG
     Route: 064
  45. ENBREL [Suspect]
     Active Substance: BENZYL ALCOHOL\ETANERCEPT
     Indication: Rheumatic fever
     Dosage: 50 MG, QW (1 EVERY 1 WEEK)
     Route: 064
  46. ENBREL [Suspect]
     Active Substance: BENZYL ALCOHOL\ETANERCEPT
     Dosage: 40.0 MG
     Route: 064
  47. ENBREL [Suspect]
     Active Substance: BENZYL ALCOHOL\ETANERCEPT
     Dosage: 10 MG, QW (1 EVERY 1 WEEK)
     Route: 064
  48. FLUMETHASONE PIVALATE [Suspect]
     Active Substance: FLUMETHASONE PIVALATE
     Indication: Exposure during pregnancy
     Dosage: UNK
     Route: 064
  49. FOLIC ACID [Suspect]
     Active Substance: FOLIC ACID
     Indication: Exposure during pregnancy
     Dosage: UNK
     Route: 064
  50. FOLIC ACID [Suspect]
     Active Substance: FOLIC ACID
     Indication: Product used for unknown indication
  51. FOSAMAX [Suspect]
     Active Substance: ALENDRONATE SODIUM
     Indication: Exposure during pregnancy
     Dosage: UNK
     Route: 064
  52. GOLD [Suspect]
     Active Substance: GOLD
     Indication: Exposure during pregnancy
     Dosage: UNK
     Route: 064
  53. HUMIRA [Suspect]
     Active Substance: ADALIMUMAB
     Indication: Exposure during pregnancy
     Dosage: 40 MG, QW (1 EVERY 1 WEEKS) (SUBCUTANEOUS)
     Route: 064
  54. HUMIRA [Suspect]
     Active Substance: ADALIMUMAB
     Indication: Rheumatic fever
     Dosage: 40 MG, QW
     Route: 064
  55. HYDROCORTISONE [Suspect]
     Active Substance: HYDROCORTISONE\HYDROCORTISONE ACETATE
     Indication: Exposure during pregnancy
     Dosage: UNK
     Route: 064
  56. HYDROXYCHLOROQUINE [Suspect]
     Active Substance: HYDROXYCHLOROQUINE
     Indication: Exposure during pregnancy
     Dosage: 200 MG
     Route: 064
  57. HYDROXYCHLOROQUINE [Suspect]
     Active Substance: HYDROXYCHLOROQUINE
     Indication: Rheumatoid arthritis
     Dosage: 400 MG
     Route: 064
  58. HYDROXYCHLOROQUINE [Suspect]
     Active Substance: HYDROXYCHLOROQUINE
     Dosage: UNK
     Route: 064
  59. HYDROXYCHLOROQUINE [Suspect]
     Active Substance: HYDROXYCHLOROQUINE
     Dosage: UNK
     Route: 064
  60. HYDROXYCHLOROQUINE [Suspect]
     Active Substance: HYDROXYCHLOROQUINE
     Dosage: UNK
     Route: 064
  61. HYDROXYCHLOROQUINE SULFATE [Suspect]
     Active Substance: HYDROXYCHLOROQUINE SULFATE
     Indication: Exposure during pregnancy
     Dosage: UNK
     Route: 064
  62. LEFLUNOMIDE [Suspect]
     Active Substance: LEFLUNOMIDE
     Indication: Exposure during pregnancy
     Dosage: 20 MG
     Route: 064
  63. LEFLUNOMIDE [Suspect]
     Active Substance: LEFLUNOMIDE
     Indication: Rheumatoid arthritis
     Dosage: 10 MG
     Route: 064
  64. LEFLUNOMIDE [Suspect]
     Active Substance: LEFLUNOMIDE
     Dosage: UNK
     Route: 064
  65. METHOTREXATE SODIUM [Suspect]
     Active Substance: METHOTREXATE SODIUM
     Indication: Exposure during pregnancy
     Dosage: 20 MG, QW (1 EVERY 1 WEEKS)
     Route: 064
  66. METHOTREXATE SODIUM [Suspect]
     Active Substance: METHOTREXATE SODIUM
     Indication: Rheumatoid arthritis
     Dosage: 25 MG, QW (1 EVERY 1 WEEKS)
     Route: 064
  67. METHOTREXATE SODIUM [Suspect]
     Active Substance: METHOTREXATE SODIUM
     Dosage: 15 MG, QW (1 EVERY 1 WEEKS)
     Route: 064
  68. METHOTREXATE SODIUM [Suspect]
     Active Substance: METHOTREXATE SODIUM
     Dosage: UNK
     Route: 064
  69. METHOTREXATE SODIUM [Suspect]
     Active Substance: METHOTREXATE SODIUM
     Dosage: 25 MG, QW
     Route: 064
  70. METHYLPREDNISOLONE [Suspect]
     Active Substance: METHYLPREDNISOLONE
     Indication: Exposure during pregnancy
     Dosage: 80 MG
     Route: 064
  71. MINOCYCLINE [Suspect]
     Active Substance: MINOCYCLINE HYDROCHLORIDE
     Indication: Exposure during pregnancy
     Dosage: UNK
     Route: 064
  72. MINOCYCLINE [Suspect]
     Active Substance: MINOCYCLINE HYDROCHLORIDE
     Indication: Rheumatic fever
  73. MYOCHRYSINE [Suspect]
     Active Substance: GOLD SODIUM THIOMALATE
     Indication: Exposure during pregnancy
     Dosage: UNK, (SOLUTION INTRAMUSCULAR)
     Route: 064
  74. MYOCHRYSINE [Suspect]
     Active Substance: GOLD SODIUM THIOMALATE
     Indication: Rheumatoid arthritis
  75. ORENCIA [Suspect]
     Active Substance: ABATACEPT
     Indication: Exposure during pregnancy
     Dosage: 125 MG, QW (1 EVERY 1 WEEKS)
     Route: 064
  76. ORENCIA [Suspect]
     Active Substance: ABATACEPT
     Indication: Rheumatic fever
     Dosage: 160 MG
     Route: 064
  77. ORENCIA [Suspect]
     Active Substance: ABATACEPT
     Dosage: 750 MG
     Route: 064
  78. ORENCIA [Suspect]
     Active Substance: ABATACEPT
     Dosage: 750.0 MG
     Route: 064
  79. ORENCIA [Suspect]
     Active Substance: ABATACEPT
     Dosage: UNK
     Route: 064
  80. ORENCIA [Suspect]
     Active Substance: ABATACEPT
     Dosage: UNK
     Route: 064
  81. ORENCIA [Suspect]
     Active Substance: ABATACEPT
     Dosage: 250 MG
     Route: 064
  82. OTEZLA [Suspect]
     Active Substance: APREMILAST
     Indication: Exposure during pregnancy
     Dosage: UNK
     Route: 064
  83. OTEZLA [Suspect]
     Active Substance: APREMILAST
     Indication: Rheumatoid arthritis
  84. PERIOGARD [Suspect]
     Active Substance: CHLORHEXIDINE GLUCONATE
     Indication: Exposure during pregnancy
     Dosage: UNK
     Route: 064
  85. PHTHALYLSULFATHIAZOLE [Suspect]
     Active Substance: PHTHALYLSULFATHIAZOLE
     Indication: Exposure during pregnancy
     Dosage: UNK
     Route: 064
  86. PSEUDOEPHEDRINE [Suspect]
     Active Substance: PSEUDOEPHEDRINE
     Indication: Exposure during pregnancy
     Dosage: UNK
     Route: 064
  87. REMICADE [Suspect]
     Active Substance: INFLIXIMAB
     Indication: Exposure during pregnancy
     Dosage: 400 MG
     Route: 064
  88. REMICADE [Suspect]
     Active Substance: INFLIXIMAB
     Indication: Rheumatoid arthritis
     Dosage: 500 MG (POWDER FOR SOLUTION INTRAVENOUS)
     Route: 064
  89. REMICADE [Suspect]
     Active Substance: INFLIXIMAB
     Dosage: UNK
     Route: 064
  90. REMICADE [Suspect]
     Active Substance: INFLIXIMAB
     Dosage: UNK
     Route: 064
  91. REMICADE [Suspect]
     Active Substance: INFLIXIMAB
     Dosage: 500 MG
     Route: 064
  92. SULFASALAZINE [Suspect]
     Active Substance: SULFASALAZINE
     Indication: Exposure during pregnancy
     Dosage: UNK
     Route: 064
  93. SULFASALAZINE [Suspect]
     Active Substance: SULFASALAZINE
     Indication: Rheumatoid arthritis
  94. SIMPONI [Suspect]
     Active Substance: GOLIMUMAB
     Indication: Exposure during pregnancy
     Dosage: 50.0 MG, (SOLUTION SUBCUTANEOUS)
     Route: 064
  95. SIMPONI [Suspect]
     Active Substance: GOLIMUMAB
     Indication: Rheumatic fever
     Dosage: UNK
     Route: 064
  96. SIRUKUMAB [Suspect]
     Active Substance: SIRUKUMAB
     Indication: Exposure during pregnancy
     Dosage: UNK
     Route: 064
  97. GOLD SODIUM THIOMALATE [Suspect]
     Active Substance: GOLD SODIUM THIOMALATE
     Indication: Exposure during pregnancy
     Dosage: UNK
     Route: 064
  98. STELARA [Suspect]
     Active Substance: USTEKINUMAB
     Indication: Exposure during pregnancy
     Dosage: UNK, (SOLUTION SUBCUTANEOUS)
     Route: 064
  99. STELARA [Suspect]
     Active Substance: USTEKINUMAB
     Indication: Rheumatoid arthritis
  100. SULFAMETHOXAZOLE AND TRIMETHOPRIM [Suspect]
     Active Substance: SULFAMETHOXAZOLE\TRIMETHOPRIM
     Indication: Exposure during pregnancy
     Dosage: UNK
     Route: 064
  101. SULFAMETHOXAZOLE AND TRIMETHOPRIM [Suspect]
     Active Substance: SULFAMETHOXAZOLE\TRIMETHOPRIM
     Indication: Rheumatoid arthritis
  102. SULFASALAZINE [Suspect]
     Active Substance: SULFASALAZINE
     Indication: Exposure during pregnancy
     Dosage: 1 MG
     Route: 064
  103. SULFASALAZINE [Suspect]
     Active Substance: SULFASALAZINE
     Dosage: UNK
     Route: 064
  104. TRAMADOL HYDROCHLORIDE [Suspect]
     Active Substance: TRAMADOL HYDROCHLORIDE
     Indication: Exposure during pregnancy
     Dosage: UNK
     Route: 064
  105. TRAMADOL HYDROCHLORIDE [Suspect]
     Active Substance: TRAMADOL HYDROCHLORIDE
     Indication: Product used for unknown indication
  106. XELJANZ [Suspect]
     Active Substance: TOFACITINIB CITRATE
     Indication: Exposure during pregnancy
     Dosage: 5 MG
     Route: 064
  107. XELJANZ [Suspect]
     Active Substance: TOFACITINIB CITRATE
     Indication: Rheumatic fever
     Dosage: 10 MG
     Route: 064
  108. XELJANZ [Suspect]
     Active Substance: TOFACITINIB CITRATE
     Dosage: 5 MG
     Route: 064
  109. XELJANZ [Suspect]
     Active Substance: TOFACITINIB CITRATE
     Dosage: 5 MG
     Route: 064
  110. XELJANZ [Suspect]
     Active Substance: TOFACITINIB CITRATE
     Dosage: 5 MG
     Route: 064
  111. CAFFEINE [Suspect]
     Active Substance: CAFFEINE
     Indication: Product used for unknown indication
     Dosage: 1 DOSAGE FORM
     Route: 064
  112. CAFFEINE [Suspect]
     Active Substance: CAFFEINE
     Indication: Exposure during pregnancy
  113. STELARA [Suspect]
     Active Substance: USTEKINUMAB
     Indication: Rheumatoid arthritis
     Dosage: UNK
     Route: 064
  114. STELARA [Suspect]
     Active Substance: USTEKINUMAB
     Indication: Exposure during pregnancy
  115. DESOGESTREL [Concomitant]
     Active Substance: DESOGESTREL
     Indication: Exposure during pregnancy
     Dosage: UNK
     Route: 064
  116. NAPROXEN [Concomitant]
     Active Substance: NAPROXEN
     Indication: Exposure during pregnancy
     Dosage: UNK
     Route: 064

REACTIONS (3)
  - Congenital anomaly [Not Recovered/Not Resolved]
  - Foetal exposure during pregnancy [Not Recovered/Not Resolved]
  - Maternal exposure during pregnancy [Not Recovered/Not Resolved]
